FAERS Safety Report 9269607 (Version 2)
Quarter: 2013Q3

REPORT INFORMATION
  Report Type: Report from Study
  Country: DE (occurrence: DE)
  Receive Date: 20130503
  Receipt Date: 20130802
  Transmission Date: 20140515
  Serious: Yes (Hospitalization)
  Sender: FDA-Public Use
  Company Number: DE-ABBOTT-13P-062-1081795-00

PATIENT
  Age: 79 Year
  Sex: Female

DRUGS (7)
  1. HUMIRA [Suspect]
     Indication: RHEUMATOID ARTHRITIS
     Route: 058
     Dates: start: 20100716, end: 20121226
  2. HUMIRA [Suspect]
     Dates: start: 20130626
  3. MTX [Concomitant]
     Indication: RHEUMATOID ARTHRITIS
  4. L-THYROXINE [Concomitant]
     Indication: THYROID DISORDER
     Route: 048
  5. BLOOD PRESSURE MEDICATION [Concomitant]
     Indication: BLOOD PRESSURE ABNORMAL
  6. PAIN MEDICATION [Concomitant]
     Indication: PAIN
  7. BLOOD THINNER [Concomitant]
     Indication: PRODUCT USED FOR UNKNOWN INDICATION

REACTIONS (4)
  - Skin ulcer [Recovered/Resolved]
  - Localised infection [Recovered/Resolved]
  - Empyema [Recovered/Resolved]
  - Urinary tract infection [Not Recovered/Not Resolved]
